FAERS Safety Report 13228053 (Version 1)
Quarter: 2017Q1

REPORT INFORMATION
  Report Type: Not Available
  Country: US (occurrence: US)
  Receive Date: 20170213
  Receipt Date: 20170213
  Transmission Date: 20170428
  Serious: No
  Sender: FDA-Public Use
  Company Number: US-ANIPHARMA-2016-US-005482

PATIENT
  Age: 80 Year
  Sex: Female

DRUGS (2)
  1. CEFADROXIL (NON-SPECIFIC) [Suspect]
     Active Substance: CEFADROXIL
     Dosage: UNKNOWN
     Route: 065
  2. INDERAL LA [Suspect]
     Active Substance: PROPRANOLOL HYDROCHLORIDE
     Dosage: UNKNOWN
     Route: 065

REACTIONS (2)
  - Abdominal discomfort [Unknown]
  - Insomnia [Unknown]
